FAERS Safety Report 15180866 (Version 1)
Quarter: 2018Q3

REPORT INFORMATION
  Report Type: Spontaneous
  Country: US (occurrence: US)
  Receive Date: 20180723
  Receipt Date: 20180723
  Transmission Date: 20181010
  Serious: No
  Sender: FDA-Public Use
  Company Number: US-AUROBINDO-AUR-APU-2018-034178

PATIENT
  Age: 72 Year
  Sex: Female

DRUGS (1)
  1. METHENAMINE HIPPURATE TABLET USP 1G [Suspect]
     Active Substance: METHENAMINE HIPPURATE
     Indication: URINARY TRACT INFECTION
     Dosage: 1 DOSAGE FORM, DAILY
     Route: 065
     Dates: start: 20180207

REACTIONS (3)
  - Product quality issue [Unknown]
  - No adverse event [Unknown]
  - Product storage error [Unknown]
